FAERS Safety Report 7645622-X (Version None)
Quarter: 2011Q3

REPORT INFORMATION
  Report Type: 
  Country: None (occurrence: None)
  Receive Date: 20110729
  Receipt Date: 20110720
  Transmission Date: 20111222
  Serious: Yes (Hospitalization)
  Sender: FDA-Public Use
  Company Number: FR-ASTRAZENECA-2011SE43892

PATIENT
  Age: 79 Year
  Sex: Female

DRUGS (8)
  1. ATORVASTATIN CALCIUM [Concomitant]
     Indication: DYSLIPIDAEMIA
     Route: 048
  2. IRBESARTAN AND HYDROCHLOROTHIAZIDE [Concomitant]
     Indication: HYPERTENSION
     Route: 048
  3. PREVISCAN [Concomitant]
     Indication: ARRHYTHMIA
     Route: 048
  4. TENORMIN [Suspect]
     Indication: ARRHYTHMIA
     Route: 048
     Dates: start: 20101207, end: 20110101
  5. FLECAINIDE ACETATE [Concomitant]
     Indication: ARRHYTHMIA
     Route: 048
  6. LASIX [Concomitant]
     Indication: HYPERTENSION
     Route: 048
  7. DIGOXIN [Concomitant]
     Indication: ARRHYTHMIA
     Route: 048
  8. AUGMENTIN '125' [Suspect]
     Indication: LYMPHADENOPATHY
     Dosage: DAILY
     Route: 048
     Dates: start: 20110104, end: 20110101

REACTIONS (1)
  - POLYARTERITIS NODOSA [None]
